FAERS Safety Report 9314772 (Version 1)
Quarter: 2013Q2

REPORT INFORMATION
  Report Type: Report from Study
  Country: US (occurrence: US)
  Receive Date: 20130529
  Receipt Date: 20130529
  Transmission Date: 20140414
  Serious: Yes (Hospitalization)
  Sender: FDA-Public Use
  Company Number: US-ROCHE-1227293

PATIENT
  Sex: Male

DRUGS (2)
  1. AVASTIN [Suspect]
     Indication: PRODUCT USED FOR UNKNOWN INDICATION
     Route: 065
  2. CPT-11 [Concomitant]
     Route: 042

REACTIONS (15)
  - Confusional state [Unknown]
  - Fatigue [Unknown]
  - Dermatitis allergic [Unknown]
  - Local swelling [Unknown]
  - Pain in extremity [Unknown]
  - Fatigue [Unknown]
  - Diarrhoea [Unknown]
  - Epistaxis [Unknown]
  - Hemiparesis [Unknown]
  - Convulsion [Unknown]
  - Headache [Unknown]
  - Balance disorder [Unknown]
  - Speech disorder [Unknown]
  - Dysphagia [Unknown]
  - Visual impairment [Unknown]
